FAERS Safety Report 8211367-0 (Version None)
Quarter: 2012Q1

REPORT INFORMATION
  Report Type: 
  Country: None (occurrence: None)
  Receive Date: 20120228
  Receipt Date: 20110824
  Transmission Date: 20120608
  Serious: Yes (Death, Other)
  Sender: FDA-Public Use
  Company Number: RB-31799-2011

PATIENT
  Sex: Male
  Weight: 139.2543 kg

DRUGS (3)
  1. SUBOXONE [Suspect]
     Indication: PRODUCT USED FOR UNKNOWN INDICATION
  2. SERTRALINE (NONE) [Suspect]
     Indication: PRODUCT USED FOR UNKNOWN INDICATION
  3. DIPHENHYDRAMINE (NONE) [Suspect]
     Indication: PRODUCT USED FOR UNKNOWN INDICATION

REACTIONS (3)
  - INTENTIONAL DRUG MISUSE [None]
  - ACCIDENTAL OVERDOSE [None]
  - TOXICITY TO VARIOUS AGENTS [None]
